FAERS Safety Report 4781109-X (Version None)
Quarter: 2005Q3

REPORT INFORMATION
  Report Type: 
  Country: None (occurrence: None)
  Receive Date: 20050928
  Receipt Date: 20050913
  Transmission Date: 20060218
  Serious: Yes (Hospitalization)
  Sender: FDA-Public Use
  Company Number: US-KINGPHARMUSA00001-K200501199

PATIENT
  Age: 47 Year
  Sex: Male

DRUGS (3)
  1. ALTACE [Suspect]
     Indication: HYPERTENSION
     Dosage: 5 MG, QD
     Route: 048
     Dates: start: 20030101, end: 20050801
  2. ALTACE [Suspect]
     Dosage: 10 MG, QD
     Route: 048
     Dates: start: 20050801
  3. BISOPROLOL [Concomitant]

REACTIONS (5)
  - ERYTHEMA [None]
  - FEELING HOT [None]
  - PAIN OF SKIN [None]
  - PRURITUS [None]
  - SKIN EXFOLIATION [None]
